FAERS Safety Report 5579375-6 (Version None)
Quarter: 2008Q1

REPORT INFORMATION
  Report Type: 
  Country: None (occurrence: None)
  Receive Date: 20080102
  Receipt Date: 20071220
  Transmission Date: 20080703
  Serious: No
  Sender: FDA-Public Use
  Company Number: FR-ELI_LILLY_AND_COMPANY-FR200711004138

PATIENT
  Age: 47 Year
  Sex: Female
  Weight: 45 kg

DRUGS (5)
  1. FORTEO [Suspect]
     Indication: OSTEOPOROSIS
     Dosage: 20 UG, DAILY (1/D)
     Route: 058
     Dates: start: 20071108
  2. PAROXETINE [Concomitant]
     Indication: DEPRESSION
     Dosage: 20 MG, 2/D
     Route: 048
     Dates: start: 20071003
  3. LEXOMIL [Concomitant]
     Indication: ANXIETY
     Dosage: 1 D/F, DAILY (1/D)
     Route: 048
     Dates: start: 19950101
  4. EQUANIL [Concomitant]
     Indication: ANXIETY
     Dosage: 1.5 D/F, DAILY (1/D)
     Route: 048
     Dates: start: 20020101
  5. MEPRONIZINE [Concomitant]
     Indication: ANXIETY
     Dosage: 2 D/F, DAILY (1/D)
     Route: 048
     Dates: start: 19950101

REACTIONS (1)
  - EPILEPSY [None]
